FAERS Safety Report 9080530 (Version 1)
Quarter: 2013Q1

REPORT INFORMATION
  Report Type: Report from Study
  Country: US (occurrence: US)
  Receive Date: 20130130
  Receipt Date: 20130130
  Transmission Date: 20140127
  Serious: No
  Sender: FDA-Public Use
  Company Number: US-ABBOTT-12P-163-0966410-00

PATIENT
  Age: 72 Year
  Sex: Female

DRUGS (9)
  1. HUMIRA 40 MG/0.8 ML PEN [Suspect]
     Indication: RHEUMATOID ARTHRITIS
  2. HUMIRA 40 MG/0.8 ML PEN [Suspect]
     Indication: ANKYLOSING SPONDYLITIS
  3. NABUMETONE [Concomitant]
     Indication: INFLAMMATION
  4. AMITRIPTYLINE [Concomitant]
     Indication: NEUROPATHY PERIPHERAL
  5. SIMVASTATIN [Concomitant]
     Indication: BLOOD CHOLESTEROL
     Dosage: 1/2 PILL DAILY
  6. ESTROPIPATE [Concomitant]
     Indication: MENOPAUSAL SYMPTOMS
     Dosage: 0.75 WEEKLY
  7. FUROSEMIDE [Concomitant]
     Indication: SWELLING
     Dosage: 20MG DAILY
  8. POTASSIUM [Concomitant]
     Indication: PRODUCT USED FOR UNKNOWN INDICATION
  9. CALCIUM [Concomitant]
     Indication: PRODUCT USED FOR UNKNOWN INDICATION

REACTIONS (2)
  - Wrong technique in drug usage process [Recovering/Resolving]
  - Rash [Recovering/Resolving]
